FAERS Safety Report 7355945-X (Version None)
Quarter: 2011Q1

REPORT INFORMATION
  Report Type: 
  Country: None (occurrence: None)
  Receive Date: 20110316
  Receipt Date: 20110311
  Transmission Date: 20110831
  Serious: Yes (Hospitalization, Other)
  Sender: FDA-Public Use
  Company Number: US-AMGEN-USASP2011010720

PATIENT
  Age: 75 Year
  Sex: Male
  Weight: 88.435 kg

DRUGS (4)
  1. OMEPRAZOL                          /00661201/ [Concomitant]
     Dosage: UNK
     Dates: start: 20100312
  2. NEUPOGEN [Suspect]
     Indication: PRODUCT USED FOR UNKNOWN INDICATION
     Dosage: UNK
     Dates: start: 20100806
  3. NPLATE [Suspect]
     Indication: OFF LABEL USE
     Dosage: 500 A?G, QWK
     Route: 058
     Dates: start: 20100809, end: 20101222
  4. ALBUTEROL [Concomitant]
     Dosage: UNK
     Dates: start: 20091026

REACTIONS (3)
  - MYELODYSPLASTIC SYNDROME [None]
  - FEBRILE NEUTROPENIA [None]
  - THROMBOCYTOPENIA [None]
